FAERS Safety Report 4903337-2 (Version None)
Quarter: 2006Q1

REPORT INFORMATION
  Report Type: 
  Country: None (occurrence: None)
  Receive Date: 20060206
  Receipt Date: 20060206
  Transmission Date: 20060701
  Serious: Yes (Life-Threatening, Hospitalization)
  Sender: FDA-Public Use
  Company Number: None

PATIENT
  Age: 58 Year
  Sex: Male
  Weight: 80.2 kg

DRUGS (3)
  1. CLOZAPINE [Suspect]
     Indication: SCHIZOAFFECTIVE DISORDER
     Dosage: SEE IMAGE
  2. VALPROIC [Concomitant]
  3. OLANZAPINE [Concomitant]

REACTIONS (3)
  - DRUG TOXICITY [None]
  - ILEUS [None]
  - PERICARDIAL EFFUSION [None]
